FAERS Safety Report 10717244 (Version 2)
Quarter: 2015Q2

REPORT INFORMATION
  Report Type: Spontaneous
  Country: CN (occurrence: CN)
  Receive Date: 20150116
  Receipt Date: 20150415
  Transmission Date: 20150821
  Serious: Yes (Other)
  Sender: FDA-Public Use
  Company Number: CN-ABBVIE-15P-035-1333500-00

PATIENT
  Age: 30 Year
  Sex: Female

DRUGS (2)
  1. DEPAKINE CHRONO [Suspect]
     Active Substance: VALPROATE SODIUM
     Indication: SCHIZOPHRENIA
     Dosage: EXTENDED RELEASE
     Route: 048
     Dates: start: 20141205, end: 20150105
  2. ARIPIPRAZOLE. [Concomitant]
     Active Substance: ARIPIPRAZOLE
     Indication: PRODUCT USED FOR UNKNOWN INDICATION
     Dates: start: 20141205, end: 20150105

REACTIONS (5)
  - Mental impairment [Recovering/Resolving]
  - Asthenia [Recovering/Resolving]
  - Depressed mood [Recovering/Resolving]
  - Chest discomfort [Recovering/Resolving]
  - Dizziness [Recovering/Resolving]

NARRATIVE: CASE EVENT DATE: 20150105
